FAERS Safety Report 7973402-4 (Version None)
Quarter: 2011Q4

REPORT INFORMATION
  Report Type: 
  Country: None (occurrence: None)
  Receive Date: 20111213
  Receipt Date: 20110902
  Transmission Date: 20120403
  Serious: Yes (Other)
  Sender: FDA-Public Use
  Company Number: US-AMGEN-USASP2011045160

PATIENT
  Age: 87 Year
  Sex: Male

DRUGS (14)
  1. MEGESTROL ACETATE [Concomitant]
  2. MIRTAZEPINE TEVA [Concomitant]
  3. IRON [Concomitant]
  4. OMEPRAZOLE [Concomitant]
  5. ARANESP [Suspect]
     Indication: RENAL FAILURE CHRONIC
     Dosage: 60 MUG, UNK
  6. LASIX [Concomitant]
  7. CARAFATE [Concomitant]
  8. VITAMIN B-12 [Concomitant]
  9. COUMADIN [Concomitant]
  10. ASPIRIN [Concomitant]
  11. ACETAMINOPHEN [Concomitant]
  12. FOLIC ACID [Concomitant]
  13. LOPRESSOR [Concomitant]
  14. POTASSIUM CHLORIDE [Concomitant]

REACTIONS (2)
  - DRUG INEFFECTIVE [None]
  - BLOOD COUNT ABNORMAL [None]
